FAERS Safety Report 5890102-5 (Version None)
Quarter: 2008Q3

REPORT INFORMATION
  Report Type: 
  Country: None (occurrence: None)
  Receive Date: 20080919
  Receipt Date: 20080902
  Transmission Date: 20090109
  Serious: No
  Sender: FDA-Public Use
  Company Number: US-B.I. PHARMACEUTICALS,INC./RIDGEFIELD-2008-BP-13948BP

PATIENT
  Sex: Male

DRUGS (1)
  1. RANITIDINE (RANITIDINE HYDROCHLORIDE) 150 MG [Suspect]
     Dosage: 150MG
     Dates: start: 20080829

REACTIONS (3)
  - CHILLS [None]
  - FLUSHING [None]
  - PYREXIA [None]
